FAERS Safety Report 20222014 (Version 1)
Quarter: 2021Q4

REPORT INFORMATION
  Report Type: Spontaneous
  Country: IR (occurrence: IR)
  Receive Date: 20211223
  Receipt Date: 20211223
  Transmission Date: 20220303
  Serious: Yes (Other)
  Sender: FDA-Public Use
  Company Number: IR-LUPIN PHARMACEUTICALS INC.-2021-25288

PATIENT
  Age: 19 Year
  Sex: Female

DRUGS (6)
  1. METHYLPREDNISOLONE [Suspect]
     Active Substance: METHYLPREDNISOLONE
     Indication: Sympathetic ophthalmia
     Dosage: 1 GRAM, QD, HIGH-DOSE PULSE THERAPY
     Route: 042
  2. PREDNISOLONE [Suspect]
     Active Substance: PREDNISOLONE
     Indication: Sympathetic ophthalmia
     Dosage: 50 MILLIGRAM, QD
     Route: 048
  3. TRIAMCINOLONE [Suspect]
     Active Substance: TRIAMCINOLONE
     Indication: Sympathetic ophthalmia
     Dosage: UNK, 40 MG/1 CC; BILATERALLY (SUBTENON)
     Route: 042
  4. BETAMETHASONE VALERATE [Suspect]
     Active Substance: BETAMETHASONE VALERATE
     Indication: Steroid therapy
     Dosage: UNK (BETHASONATE)
     Route: 061
  5. CHLORAMPHENICOL [Concomitant]
     Active Substance: CHLORAMPHENICOL
     Indication: Antibiotic therapy
     Dosage: UNK (CHLOBIOTIC)
     Route: 061
  6. MYCOPHENOLATE MOFETIL [Concomitant]
     Active Substance: MYCOPHENOLATE MOFETIL
     Indication: Sympathetic ophthalmia
     Dosage: 2 GRAM, QD
     Route: 065

REACTIONS (1)
  - Steroid diabetes [Recovered/Resolved]
